FAERS Safety Report 6437615-5 (Version None)
Quarter: 2009Q4

REPORT INFORMATION
  Report Type: 
  Country: None (occurrence: None)
  Receive Date: 20091112
  Receipt Date: 20091103
  Transmission Date: 20100525
  Serious: Yes (Hospitalization, Other)
  Sender: FDA-Public Use
  Company Number: AU-ELI_LILLY_AND_COMPANY-AU200910003731

PATIENT
  Age: 68 Year
  Sex: Female

DRUGS (1)
  1. CYMBALTA [Suspect]
     Indication: DEPRESSION
     Dosage: 60 MG, UNKNOWN
     Route: 065
     Dates: start: 20090522, end: 20090623

REACTIONS (8)
  - CHEST PAIN [None]
  - DELUSION [None]
  - FEAR [None]
  - HALLUCINATION [None]
  - HOT FLUSH [None]
  - PALPITATIONS [None]
  - PANIC DISORDER [None]
  - PSYCHOTIC DISORDER [None]
